FAERS Safety Report 25483454 (Version 1)
Quarter: 2025Q2

REPORT INFORMATION
  Report Type: Report from Study
  Country: PH (occurrence: PH)
  Receive Date: 20250626
  Receipt Date: 20250626
  Transmission Date: 20250717
  Serious: Yes (Death)
  Sender: OTSUKA
  Company Number: PH-MMM-Otsuka-YN94Q6JL

PATIENT

DRUGS (1)
  1. TOLVAPTAN [Suspect]
     Active Substance: TOLVAPTAN
     Indication: Chronic kidney disease
     Dosage: 1 DF, QD (15 MG ONE TABLET ONCE A DAY)
     Route: 048
     Dates: start: 20250320, end: 20250602

REACTIONS (3)
  - Cardiac arrest [Fatal]
  - Cerebrovascular accident [Fatal]
  - Product use in unapproved indication [Unknown]

NARRATIVE: CASE EVENT DATE: 20250320
